FAERS Safety Report 6538904-6 (Version None)
Quarter: 2010Q1

REPORT INFORMATION
  Report Type: 
  Country: None (occurrence: None)
  Receive Date: 20100115
  Receipt Date: 20100104
  Transmission Date: 20100710
  Serious: Yes (Hospitalization)
  Sender: FDA-Public Use
  Company Number: DE-WYE-H12907710

PATIENT
  Age: 46 Year
  Sex: Male

DRUGS (2)
  1. PANTOPRAZOLE [Suspect]
     Dosage: OVERDOSE AMOUNT 10 TABLETS
     Route: 048
     Dates: start: 20100102, end: 20100102
  2. IBUPROFEN [Suspect]
     Dosage: OVERDOSE AMOUNT 15.2 GM
     Route: 048
     Dates: start: 20100102, end: 20100102

REACTIONS (3)
  - FATIGUE [None]
  - INTENTIONAL OVERDOSE [None]
  - SUICIDE ATTEMPT [None]
